FAERS Safety Report 7983442-7 (Version None)
Quarter: 2011Q4

REPORT INFORMATION
  Report Type: 
  Country: None (occurrence: None)
  Receive Date: 20111215
  Receipt Date: 20110908
  Transmission Date: 20120403
  Serious: No
  Sender: FDA-Public Use
  Company Number: US-BAYER-2011-090165

PATIENT
  Sex: Female

DRUGS (2)
  1. CERAVE CLEANSER AND MOISTURIZER [Suspect]
  2. FINACEA [Suspect]
     Indication: ROSACEA

REACTIONS (3)
  - SKIN BURNING SENSATION [None]
  - SKIN EXFOLIATION [None]
  - SWELLING FACE [None]
